FAERS Safety Report 11750632 (Version 6)
Quarter: 2016Q1

REPORT INFORMATION
  Report Type: Spontaneous
  Country: US (occurrence: US)
  Receive Date: 20151118
  Receipt Date: 20160331
  Transmission Date: 20160525
  Serious: Yes (Hospitalization, Disabling, Other)
  Sender: FDA-Public Use
  Company Number: US-SA-2015SA180356

PATIENT
  Age: 57 Year
  Sex: Female
  Weight: 113.3 kg

DRUGS (1)
  1. LOVENOX [Suspect]
     Active Substance: ENOXAPARIN SODIUM
     Indication: ANTICOAGULANT THERAPY
     Route: 065
     Dates: start: 20140317, end: 20140329

REACTIONS (15)
  - Gait disturbance [Recovering/Resolving]
  - Abdominal wall haemorrhage [Unknown]
  - Depression [Unknown]
  - Insomnia [Unknown]
  - Haematemesis [Recovered/Resolved]
  - Heparin-induced thrombocytopenia [Unknown]
  - Deafness unilateral [Unknown]
  - Cerebrovascular accident [Not Recovered/Not Resolved]
  - Contusion [Recovered/Resolved]
  - Unevaluable event [Unknown]
  - Platelet count decreased [Unknown]
  - Cerebrovascular accident [Unknown]
  - Headache [Unknown]
  - Anxiety [Unknown]
  - Injection site pain [Unknown]

NARRATIVE: CASE EVENT DATE: 20140320
